FAERS Safety Report 15289321 (Version 2)
Quarter: 2018Q4

REPORT INFORMATION
  Report Type: Spontaneous
  Country: US (occurrence: US)
  Receive Date: 20180817
  Receipt Date: 20181012
  Transmission Date: 20190204
  Serious: No
  Sender: FDA-Public Use
  Company Number: US-GLAXOSMITHKLINE-US2018143932

PATIENT
  Age: 70 Year
  Sex: Female

DRUGS (2)
  1. NICODERM CQ [Suspect]
     Active Substance: NICOTINE
     Indication: SMOKING CESSATION THERAPY
     Dosage: 21 MG, UNK
     Route: 062
  2. NICODERM CQ [Suspect]
     Active Substance: NICOTINE
     Indication: SMOKING CESSATION THERAPY
     Dosage: 14 MG, UNK
     Route: 062
     Dates: start: 20180803

REACTIONS (6)
  - Application site erythema [Recovered/Resolved with Sequelae]
  - Application site rash [Recovering/Resolving]
  - Application site pain [Recovering/Resolving]
  - Application site pruritus [Recovered/Resolved]
  - Application site warmth [Recovering/Resolving]
  - Application site reaction [Recovering/Resolving]

NARRATIVE: CASE EVENT DATE: 20180803
